FAERS Safety Report 23984166 (Version 1)
Quarter: 2024Q2

REPORT INFORMATION
  Report Type: Spontaneous
  Country: GB (occurrence: GB)
  Receive Date: 20240618
  Receipt Date: 20240618
  Transmission Date: 20240716
  Serious: Yes (Disabling)
  Sender: FDA-Public Use
  Company Number: None

PATIENT
  Age: 49 Year
  Sex: Female

DRUGS (5)
  1. SINGULAIR [Suspect]
     Active Substance: MONTELUKAST SODIUM
     Indication: Asthma
     Dosage: AT NIGHT
     Dates: start: 20190101, end: 20240428
  2. MONTELUKAST SODIUM [Suspect]
     Active Substance: MONTELUKAST SODIUM
     Indication: Asthma
     Dosage: 10MG ON
     Dates: start: 20190101, end: 20240428
  3. UTROGESTAN [Concomitant]
     Active Substance: PROGESTERONE
     Indication: Hormone replacement therapy
     Dosage: UNK
     Dates: start: 20200501
  4. ESTRADIOL [Concomitant]
     Active Substance: ESTRADIOL
     Indication: Adverse drug reaction
     Dosage: UNK
     Dates: start: 20200501
  5. SALMETEROL [Concomitant]
     Active Substance: SALMETEROL
     Indication: Asthma
     Dosage: UNK
     Dates: start: 20180501

REACTIONS (4)
  - Libido decreased [Recovered/Resolved with Sequelae]
  - Decreased interest [Unknown]
  - Sexual dysfunction [Unknown]
  - Acute stress disorder [Unknown]

NARRATIVE: CASE EVENT DATE: 20190101
